FAERS Safety Report 5232445-4 (Version None)
Quarter: 2007Q1

REPORT INFORMATION
  Report Type: 
  Country: None (occurrence: None)
  Receive Date: 20070205
  Receipt Date: 20070129
  Transmission Date: 20070707
  Serious: Yes (Hospitalization, Other)
  Sender: FDA-Public Use
  Company Number: 2006SP008004

PATIENT
  Age: 79 Year
  Sex: Female

DRUGS (4)
  1. DESLORATADINE [Suspect]
     Indication: SINUSITIS
     Dosage: 5 MG; QD; PO
     Route: 048
     Dates: start: 20030101
  2. COKENZEN [Concomitant]
  3. ZANIDIP [Concomitant]
  4. FOSAMAX [Concomitant]

REACTIONS (1)
  - ANAEMIA [None]
